FAERS Safety Report 6782719-0 (Version None)
Quarter: 2010Q2

REPORT INFORMATION
  Report Type: 
  Country: None (occurrence: None)
  Receive Date: 20100621
  Receipt Date: 20100611
  Transmission Date: 20101027
  Serious: Yes (Hospitalization, Other)
  Sender: FDA-Public Use
  Company Number: US-ASTRAZENECA-2010SE27376

PATIENT
  Age: 54 Year
  Sex: Male
  Weight: 118.4 kg

DRUGS (1)
  1. SEROQUEL [Suspect]
     Indication: POST-TRAUMATIC STRESS DISORDER
     Route: 048
     Dates: start: 20040101, end: 20050101

REACTIONS (4)
  - AMNESIA [None]
  - DIABETIC COMA [None]
  - PSYCHOMOTOR SKILLS IMPAIRED [None]
  - SPEECH DISORDER [None]
